FAERS Safety Report 7755826-3 (Version None)
Quarter: 2011Q3

REPORT INFORMATION
  Report Type: 
  Country: None (occurrence: None)
  Receive Date: 20110916
  Receipt Date: 20110907
  Transmission Date: 20111222
  Serious: Yes (Hospitalization)
  Sender: FDA-Public Use
  Company Number: US-JNJFOC-20110903531

PATIENT
  Age: 80 Year
  Sex: Female
  Weight: 63.5 kg

DRUGS (4)
  1. UNKNOWN ANTIHYPERTENSIVE DRUG [Concomitant]
     Indication: HYPERTENSION
     Route: 065
  2. BENGAY PAIN RELIEF AND MASSAGE [Suspect]
     Indication: MUSCULOSKELETAL PAIN
     Route: 061
     Dates: start: 20110814
  3. UNSPECIFIED MEDICATION FOR HYPOTHYROIDISM [Concomitant]
     Indication: HYPOTHYROIDISM
     Route: 065
  4. COUMADIN [Concomitant]
     Indication: PRODUCT USED FOR UNKNOWN INDICATION
     Route: 065

REACTIONS (3)
  - PRODUCT LABEL ISSUE [None]
  - CHEMICAL INJURY [None]
  - WRONG TECHNIQUE IN DRUG USAGE PROCESS [None]
